FAERS Safety Report 18623978 (Version 1)
Quarter: 2020Q4

REPORT INFORMATION
  Report Type: Spontaneous
  Country: US (occurrence: US)
  Receive Date: 20201216
  Receipt Date: 20201216
  Transmission Date: 20210114
  Serious: Yes (Other)
  Sender: FDA-Public Use
  Company Number: US-AMGEN-USASP2020199351

PATIENT
  Age: 88 Year
  Sex: Male

DRUGS (2)
  1. PROCRIT [Suspect]
     Active Substance: ERYTHROPOIETIN
     Indication: OXYGEN CONSUMPTION DECREASED
     Dosage: 60000 UNIT, Q2WK (THREE TIMES)
     Route: 065
     Dates: start: 2020
  2. PROCRIT [Suspect]
     Active Substance: ERYTHROPOIETIN
     Indication: HAEMOGLOBIN DECREASED
     Dosage: 40000 UNIT, Q2WK
     Route: 065

REACTIONS (5)
  - Overdose [Unknown]
  - Colitis [Unknown]
  - Haemoglobin decreased [Unknown]
  - Dysphagia [Unknown]
  - Insomnia [Unknown]

NARRATIVE: CASE EVENT DATE: 2020
